FAERS Safety Report 9909525 (Version 3)
Quarter: 2014Q4

REPORT INFORMATION
  Report Type: Spontaneous
  Country: US (occurrence: US)
  Receive Date: 20140219
  Receipt Date: 20141027
  Transmission Date: 20150529
  Serious: Yes (Other)
  Sender: FDA-Public Use
  Company Number: US-BAYER-2014-025239

PATIENT
  Age: 32 Year
  Sex: Female
  Weight: 52 kg

DRUGS (2)
  1. SYNTHROID [Concomitant]
     Active Substance: LEVOTHYROXINE SODIUM
     Indication: HYPOTHYROIDISM
     Dosage: UNK
     Dates: start: 2001
  2. MIRENA [Suspect]
     Active Substance: LEVONORGESTREL
     Indication: CONTRACEPTION
     Dosage: 20 MCG/24HR, CONT
     Route: 015
     Dates: start: 200809, end: 20120831

REACTIONS (17)
  - Pain [None]
  - Abdominal pain upper [None]
  - Abdominal distension [None]
  - Genital haemorrhage [None]
  - Injury [None]
  - Procedural pain [None]
  - Musculoskeletal disorder [None]
  - Device issue [None]
  - Device issue [None]
  - Dyspepsia [None]
  - Uterine perforation [None]
  - Malaise [None]
  - Pelvic pain [None]
  - Device dislocation [None]
  - Abdominal pain [None]
  - Menstrual disorder [None]
  - Scar [None]

NARRATIVE: CASE EVENT DATE: 201011
